FAERS Safety Report 13928013 (Version 2)
Quarter: 2017Q3

REPORT INFORMATION
  Report Type: Spontaneous
  Country: BR (occurrence: BR)
  Receive Date: 20170901
  Receipt Date: 20170927
  Transmission Date: 20171127
  Serious: Yes (Death, Hospitalization, Congenital Anomaly, Other)
  Sender: FDA-Public Use
  Company Number: BR-PFIZER INC-2017342414

PATIENT
  Sex: Female

DRUGS (2)
  1. XALATAN [Suspect]
     Active Substance: LATANOPROST
     Indication: GLAUCOMA
     Dosage: 1 DROP IN EACH EYE DAILY
     Route: 064
     Dates: start: 2013, end: 201506
  2. CLEXANE [Concomitant]
     Active Substance: ENOXAPARIN SODIUM
     Indication: HYPERCOAGULATION
     Dosage: 1 INJECTION DAILY
     Route: 064
     Dates: start: 201504, end: 201512

REACTIONS (9)
  - Dyspnoea [Not Recovered/Not Resolved]
  - Cardiac disorder [Fatal]
  - Premature baby [Not Recovered/Not Resolved]
  - Ultrasound antenatal screen [Not Recovered/Not Resolved]
  - Maternal exposure during pregnancy [Unknown]
  - Infection [Not Recovered/Not Resolved]
  - Trisomy 18 [Fatal]
  - Seizure [Not Recovered/Not Resolved]
  - Feeding tube user [Not Recovered/Not Resolved]

NARRATIVE: CASE EVENT DATE: 2015
